FAERS Safety Report 17963629 (Version 1)
Quarter: 2020Q2

REPORT INFORMATION
  Report Type: Spontaneous
  Country: GB (occurrence: GB)
  Receive Date: 20200630
  Receipt Date: 20200630
  Transmission Date: 20200714
  Serious: Yes (Hospitalization, Other)
  Sender: FDA-Public Use
  Company Number: GB-VIIV HEALTHCARE LIMITED-GB2020110645

PATIENT
  Sex: Male

DRUGS (3)
  1. NEVIRAPINE. [Suspect]
     Active Substance: NEVIRAPINE
     Indication: PRODUCT USED FOR UNKNOWN INDICATION
     Dosage: 200 MILLIGRAM, ONCE A DAY
     Route: 065
  2. ISENTRESS [Suspect]
     Active Substance: RALTEGRAVIR POTASSIUM
     Indication: PRODUCT USED FOR UNKNOWN INDICATION
     Dosage: 400 MILLIGRAM, ONCE A DAY
     Route: 065
  3. LAMIVUDINE. [Suspect]
     Active Substance: LAMIVUDINE
     Indication: PRODUCT USED FOR UNKNOWN INDICATION
     Dosage: 300 MILLIGRAM, ONCE A DAY
     Route: 065

REACTIONS (8)
  - Hallucination [Unknown]
  - Delirium [Unknown]
  - Fatigue [Unknown]
  - Suspected COVID-19 [Unknown]
  - Asthenia [Unknown]
  - Pyrexia [Unknown]
  - Malaise [Unknown]
  - Cough [Unknown]

NARRATIVE: CASE EVENT DATE: 202001
